FAERS Safety Report 15748358 (Version 1)
Quarter: 2018Q4

REPORT INFORMATION
  Report Type: Spontaneous
  Country: US (occurrence: US)
  Receive Date: 20181221
  Receipt Date: 20181221
  Transmission Date: 20190205
  Serious: No
  Sender: FDA-Public Use
  Company Number: US-APOTEX-2018AP018449

PATIENT
  Sex: Female

DRUGS (7)
  1. MUCINEX [Concomitant]
     Active Substance: GUAIFENESIN
     Indication: SINUSITIS
     Route: 065
  2. MUCINEX [Concomitant]
     Active Substance: GUAIFENESIN
     Indication: BRONCHITIS
  3. NAPROXEN. [Concomitant]
     Active Substance: NAPROXEN
     Indication: SINUSITIS
     Dosage: 500 MG, ONCE DAILY
     Route: 065
  4. NAPROXEN. [Concomitant]
     Active Substance: NAPROXEN
     Indication: BRONCHITIS
  5. CIPROFLOXACIN HYDROCHLORIDE. [Suspect]
     Active Substance: CIPROFLOXACIN HYDROCHLORIDE
     Indication: PRODUCT USED FOR UNKNOWN INDICATION
     Dosage: UNK
     Route: 065
     Dates: start: 2010
  6. LEVAQUIN [Suspect]
     Active Substance: LEVOFLOXACIN
     Indication: PRODUCT USED FOR UNKNOWN INDICATION
     Dosage: UNK
     Route: 065
     Dates: start: 2010
  7. LEVOFLOXACIN. [Concomitant]
     Active Substance: LEVOFLOXACIN
     Indication: PRODUCT USED FOR UNKNOWN INDICATION
     Route: 065

REACTIONS (2)
  - Periarthritis [Unknown]
  - Tendon pain [Unknown]

NARRATIVE: CASE EVENT DATE: 2010
